FAERS Safety Report 14190390 (Version 1)
Quarter: 2017Q4

REPORT INFORMATION
  Report Type: Spontaneous
  Country: DE (occurrence: DE)
  Receive Date: 20171115
  Receipt Date: 20171115
  Transmission Date: 20180321
  Serious: Yes (Other)
  Sender: FDA-Public Use
  Company Number: DE-009507513-1711DEU003485

PATIENT
  Age: 50 Year
  Sex: Male

DRUGS (3)
  1. TEMODAL [Suspect]
     Active Substance: TEMOZOLOMIDE
     Dosage: 200 MG/M2, QM
     Dates: start: 2017
  2. TEMODAL [Suspect]
     Active Substance: TEMOZOLOMIDE
     Indication: ANAPLASTIC ASTROCYTOMA
     Dosage: 9 CYCLES
  3. TEMODAL [Suspect]
     Active Substance: TEMOZOLOMIDE
     Dosage: 1ST MONTHLY CYCLE
     Dates: start: 2017

REACTIONS (1)
  - Anaplastic astrocytoma [Unknown]

NARRATIVE: CASE EVENT DATE: 2017
